FAERS Safety Report 15794934 (Version 1)
Quarter: 2019Q1

REPORT INFORMATION
  Report Type: Spontaneous
  Country: US (occurrence: US)
  Receive Date: 20190107
  Receipt Date: 20190107
  Transmission Date: 20190417
  Serious: No
  Sender: FDA-Public Use
  Company Number: US-TEVA-2018-US-987743

PATIENT
  Sex: Female

DRUGS (1)
  1. CARBIDOPA AND LEVODOPA TABLET [Suspect]
     Active Substance: CARBIDOPA\LEVODOPA
     Indication: SEIZURE
     Dosage: FORM STRENGTH: CARBIDOPA 25 MG/ LEVODOPA 250 MG
     Route: 065

REACTIONS (1)
  - Retching [Unknown]
